FAERS Safety Report 4377228-2 (Version None)
Quarter: 2004Q2

REPORT INFORMATION
  Report Type: 
  Country: None (occurrence: None)
  Receive Date: 20040609
  Receipt Date: 20040323
  Transmission Date: 20050107
  Serious: No
  Sender: FDA-Public Use
  Company Number: 2004206258US

PATIENT
  Age: 79 Year
  Sex: Female

DRUGS (6)
  1. BEXTRA [Suspect]
     Indication: INFLAMMATION LOCALISED
     Dosage: 0, UNK, UNK
     Route: 065
  2. ATENOLOL [Concomitant]
  3. LIPITOR [Concomitant]
  4. GLUCOSAMINE W/CHONDROITIN SULFATES (MANGANESE) [Concomitant]
  5. CENTRUM SILVER (RETINOL, VITAMINS NOS, VITAMIN B NOS) [Concomitant]
  6. ASPIRIN [Concomitant]

REACTIONS (4)
  - DRUG INEFFECTIVE [None]
  - HEADACHE [None]
  - IRRITABILITY [None]
  - RESTLESSNESS [None]
